FAERS Safety Report 9699039 (Version 1)
Quarter: 2013Q4

REPORT INFORMATION
  Report Type: Spontaneous
  Country: US (occurrence: None)
  Receive Date: 20131101
  Receipt Date: 20131101
  Transmission Date: 20140711
  Serious: Yes (Hospitalization)
  Sender: FDA-Public Use
  Company Number: 2013035433

PATIENT
  Age: 67 Year
  Sex: Female

DRUGS (1)
  1. ZEMAIRA [Suspect]
     Dates: start: 20130409, end: 20130409

REACTIONS (1)
  - Incorrect dose administered [None]
